FAERS Safety Report 6628855-0 (Version None)
Quarter: 2010Q1

REPORT INFORMATION
  Report Type: 
  Country: None (occurrence: None)
  Receive Date: 20100311
  Receipt Date: 20100225
  Transmission Date: 20100710
  Serious: No
  Sender: FDA-Public Use
  Company Number: CA-ELI_LILLY_AND_COMPANY-CA201002003596

PATIENT
  Sex: Male

DRUGS (3)
  1. CIALIS [Suspect]
     Dosage: 10 MG, AS NEEDED
     Route: 065
     Dates: start: 20000101
  2. CIALIS [Suspect]
     Dosage: 5 MG, AS NEEDED
  3. ANTIHYPERTENSIVES [Concomitant]
     Indication: BLOOD PRESSURE
     Dosage: UNK, UNKNOWN
     Route: 065

REACTIONS (2)
  - EXPIRED DRUG ADMINISTERED [None]
  - IRITIS [None]
